FAERS Safety Report 5148408-3 (Version None)
Quarter: 2006Q4

REPORT INFORMATION
  Report Type: 
  Country: None (occurrence: None)
  Receive Date: 20061106
  Receipt Date: 20061023
  Transmission Date: 20070319
  Serious: Yes (Other)
  Sender: FDA-Public Use
  Company Number: 2006129833

PATIENT
  Age: 38 Year
  Sex: Male

DRUGS (7)
  1. GABAPENTIN [Suspect]
     Indication: EPILEPSY
     Dosage: 1800 MG, ORAL
     Route: 048
  2. PHENYTOIN [Concomitant]
  3. TEGRETOL [Concomitant]
  4. CLOBAZAM [Concomitant]
  5. PRIMIDONE [Concomitant]
  6. FAMOTIDINE [Concomitant]
  7. CLEANAL (FUDOSTEINE) [Concomitant]

REACTIONS (2)
  - CONDITION AGGRAVATED [None]
  - EPILEPSY [None]
